FAERS Safety Report 9554620 (Version 2)
Quarter: 2013Q4

REPORT INFORMATION
  Report Type: Spontaneous
  Country: US (occurrence: US)
  Receive Date: 20130925
  Receipt Date: 20131107
  Transmission Date: 20140711
  Serious: No
  Sender: FDA-Public Use
  Company Number: US-009507513-1309USA010729

PATIENT
  Age: 22 Year
  Sex: Female
  Weight: 90.25 kg

DRUGS (1)
  1. NEXPLANON [Suspect]
     Indication: CONTRACEPTION
     Dosage: TOTAL DAILY DOSE: 68 MG
     Route: 058
     Dates: end: 20130920

REACTIONS (2)
  - Implant site pain [Recovered/Resolved]
  - Device kink [Recovered/Resolved]
